FAERS Safety Report 6864214-3 (Version None)
Quarter: 2010Q3

REPORT INFORMATION
  Report Type: 
  Country: None (occurrence: None)
  Receive Date: 20100721
  Receipt Date: 20080318
  Transmission Date: 20110219
  Serious: No
  Sender: FDA-Public Use
  Company Number: US-PFIZER INC-2008025897

PATIENT
  Sex: Male
  Weight: 94.545 kg

DRUGS (9)
  1. CHANTIX [Suspect]
     Indication: SMOKING CESSATION THERAPY
     Route: 048
     Dates: start: 20080201, end: 20080301
  2. OXYGEN [Concomitant]
  3. GEMFIBROZIL [Concomitant]
  4. HYDROCHLOROTHIAZIDE [Concomitant]
  5. METFORMIN [Concomitant]
  6. METOPROLOL TARTRATE [Concomitant]
  7. LOVASTATIN [Concomitant]
  8. LORATADINE [Concomitant]
  9. LOSARTAN POSTASSIUM [Concomitant]

REACTIONS (4)
  - DEPRESSION [None]
  - DYSPNOEA [None]
  - INSOMNIA [None]
  - NIGHTMARE [None]
